FAERS Safety Report 15625613 (Version 1)
Quarter: 2018Q4

REPORT INFORMATION
  Report Type: Spontaneous
  Country: US (occurrence: US)
  Receive Date: 20181115
  Receipt Date: 20181115
  Transmission Date: 20190205
  Serious: Yes (Disabling)
  Sender: FDA-Public Use
  Company Number: None

PATIENT
  Age: 48 Year
  Sex: Female
  Weight: 46.35 kg

DRUGS (2)
  1. DOTAREM [Suspect]
     Active Substance: GADOTERATE MEGLUMINE
     Indication: NUCLEAR MAGNETIC RESONANCE IMAGING BRAIN
     Dosage: ?          QUANTITY:10 ML;?
     Dates: start: 20180402, end: 20180402
  2. VITAMIN D3 [Concomitant]
     Active Substance: CHOLECALCIFEROL

REACTIONS (30)
  - Palatal disorder [None]
  - Skin tightness [None]
  - Visual impairment [None]
  - Eye pain [None]
  - Abdominal discomfort [None]
  - Dehydration [None]
  - Myalgia [None]
  - Asthenia [None]
  - Pain [None]
  - Muscle atrophy [None]
  - Oesophageal discomfort [None]
  - Bladder discomfort [None]
  - Contusion [None]
  - Bone pain [None]
  - Headache [None]
  - Paraesthesia [None]
  - Throat irritation [None]
  - Hypoaesthesia [None]
  - Peripheral coldness [None]
  - Weight decreased [None]
  - Dry eye [None]
  - Oedema peripheral [None]
  - Flushing [None]
  - Pain in extremity [None]
  - Insomnia [None]
  - Fatigue [None]
  - Hypotension [None]
  - Tendon pain [None]
  - Dry throat [None]
  - Muscle tightness [None]

NARRATIVE: CASE EVENT DATE: 20180402
